FAERS Safety Report 9288578 (Version 4)
Quarter: 2013Q2

REPORT INFORMATION
  Report Type: Spontaneous
  Country: US (occurrence: US)
  Receive Date: 20130514
  Receipt Date: 20130610
  Transmission Date: 20140414
  Serious: No
  Sender: FDA-Public Use
  Company Number: US-VERTEX PHARMACEUTICALS INC-2013-005942

PATIENT
  Age: 57 Year
  Sex: Male
  Weight: 84 kg

DRUGS (10)
  1. INCIVEK [Suspect]
     Indication: HEPATITIS C
     Dosage: 750 MG, TID
     Route: 048
     Dates: start: 20130511
  2. INCIVEK [Suspect]
     Dosage: 1125 MG, BID
     Dates: start: 20130513, end: 20130523
  3. RIBAVIRIN [Suspect]
     Indication: HEPATITIS C
     Dosage: 600 MG, BID
     Route: 048
     Dates: start: 20130511, end: 20130523
  4. PEGASYS [Suspect]
     Indication: HEPATITIS C
     Dosage: 180 ?G, QW
     Route: 058
     Dates: start: 20130511, end: 20130523
  5. AMBIEN [Concomitant]
     Dosage: 5 MG, QD
     Route: 048
  6. VALIUM [Concomitant]
     Indication: ANXIETY
     Dosage: 0.5 MG, UNK
  7. GABAPENTIN [Concomitant]
     Indication: DIABETES MELLITUS
     Dosage: 900 MG, TID
  8. NOVOLOG [Concomitant]
     Dosage: 6 TO 8 UNITS EVERY 6 HOURLY
  9. INSULIN GLARGINE [Concomitant]
     Dosage: 26 UT, QD
  10. INSULIN [Concomitant]

REACTIONS (13)
  - Dyspnoea [Not Recovered/Not Resolved]
  - Dizziness [Not Recovered/Not Resolved]
  - Vision blurred [Not Recovered/Not Resolved]
  - Confusional state [Not Recovered/Not Resolved]
  - Pain in extremity [Not Recovered/Not Resolved]
  - Tinnitus [Not Recovered/Not Resolved]
  - Weight decreased [Not Recovered/Not Resolved]
  - Constipation [Not Recovered/Not Resolved]
  - Decreased appetite [Unknown]
  - Proctalgia [Not Recovered/Not Resolved]
  - Anal pruritus [Not Recovered/Not Resolved]
  - Diarrhoea [Recovered/Resolved]
  - Dysgeusia [Unknown]
